FAERS Safety Report 9339212 (Version 1)
Quarter: 2013Q3

REPORT INFORMATION
  Report Type: Spontaneous
  Country: US (occurrence: None)
  Receive Date: 20130606
  Receipt Date: 20130606
  Transmission Date: 20140515
  Serious: Yes (Hospitalization)
  Sender: FDA-Public Use
  Company Number: None

PATIENT
  Age: 66 Year
  Sex: Male
  Weight: 77.4 kg

DRUGS (17)
  1. TAXOTERE [Suspect]
     Indication: PROSTATE CANCER
     Dosage: IVPB
     Dates: start: 20130520
  2. BEVACIZUMAB [Suspect]
     Indication: PROSTATE CANCER
     Dosage: IVPB
     Dates: start: 20130115, end: 20130604
  3. LUPRON [Concomitant]
  4. ZOMETA [Concomitant]
  5. MULTIVITAMIN [Concomitant]
  6. SIMVASTATIN [Concomitant]
  7. ACETOMINOPHEN [Concomitant]
  8. ASA [Concomitant]
  9. SIMBACORT [Concomitant]
  10. DECADRON [Concomitant]
  11. ZOFRAN [Concomitant]
  12. COMPAZINE [Concomitant]
  13. MMX [Concomitant]
  14. ARANESP [Concomitant]
  15. IMODIUM [Concomitant]
  16. STOOL SOFTENER [Concomitant]
  17. RAD001 [Suspect]
     Route: 048

REACTIONS (5)
  - Rectal haemorrhage [None]
  - Haemoglobin decreased [None]
  - Tachycardia [None]
  - Hypotension [None]
  - Diverticulum intestinal haemorrhagic [None]
